FAERS Safety Report 18907839 (Version 1)
Quarter: 2021Q1

REPORT INFORMATION
  Report Type: Report from Study
  Country: US (occurrence: US)
  Receive Date: 20210218
  Receipt Date: 20210218
  Transmission Date: 20210420
  Serious: No
  Sender: FDA-Public Use
  Company Number: NVSC2021US036714

PATIENT
  Age: 80 Year
  Sex: Female

DRUGS (1)
  1. COSENTYX [Suspect]
     Active Substance: SECUKINUMAB
     Indication: PSORIASIS
     Dosage: 300 MG, QW(ONCE WEEKLY FOR 5 WEEKS, THEN ONCE)
     Route: 058

REACTIONS (2)
  - Psoriasis [Unknown]
  - Skin plaque [Unknown]

NARRATIVE: CASE EVENT DATE: 20210215
